FAERS Safety Report 7058371-6 (Version None)
Quarter: 2010Q4

REPORT INFORMATION
  Report Type: 
  Country: None (occurrence: None)
  Receive Date: 20101022
  Receipt Date: 20101012
  Transmission Date: 20110411
  Serious: No
  Sender: FDA-Public Use
  Company Number: US-PFIZER INC-2010105534

PATIENT
  Sex: Male
  Weight: 95.238 kg

DRUGS (5)
  1. ZYVOX [Suspect]
     Indication: STAPHYLOCOCCAL INFECTION
     Dosage: 600 MG, 2X/DAY
     Route: 048
     Dates: start: 20100804, end: 20100810
  2. CELEBREX [Concomitant]
     Indication: ARTHRITIS
     Dosage: 200 MG, UNK
  3. LISINOPRIL AND HYDROCHLOROTHIAZIDE [Concomitant]
     Dosage: 10/25 MG, UNK
     Route: 048
  4. TOPROL-XL [Concomitant]
     Dosage: 25 MG, UNK
     Route: 048
  5. ZOLPIDEM TARTRATE [Concomitant]
     Dosage: 100 %, UNK

REACTIONS (9)
  - BLISTER [None]
  - DIARRHOEA [None]
  - EYE IRRITATION [None]
  - FATIGUE [None]
  - GLOSSODYNIA [None]
  - HYPERHIDROSIS [None]
  - NAUSEA [None]
  - ORAL CANDIDIASIS [None]
  - PAIN OF SKIN [None]
